FAERS Safety Report 8473628-X (Version None)
Quarter: 2012Q2

REPORT INFORMATION
  Report Type: 
  Country: None (occurrence: None)
  Receive Date: 20120628
  Receipt Date: 20110718
  Transmission Date: 20120825
  Serious: No
  Sender: FDA-Public Use
  Company Number: US-MYLANLABS-2011S1014878

PATIENT
  Age: 52 Year
  Sex: Female
  Weight: 61.69 kg

DRUGS (7)
  1. INSULIN [Concomitant]
  2. CLOZAPINE [Suspect]
     Indication: SCHIZOPHRENIA
     Route: 048
     Dates: start: 19960101
  3. PROZAC [Concomitant]
  4. LITHIUM CARBONATE [Concomitant]
  5. SYNTHROID [Concomitant]
  6. COZAAR [Concomitant]
     Indication: BLOOD PRESSURE
  7. ZOCOR [Concomitant]

REACTIONS (2)
  - BLOOD GLUCOSE INCREASED [None]
  - WEIGHT INCREASED [None]
